FAERS Safety Report 20707153 (Version 2)
Quarter: 2022Q3

REPORT INFORMATION
  Report Type: Spontaneous
  Country: CA (occurrence: CA)
  Receive Date: 20220413
  Receipt Date: 20220715
  Transmission Date: 20221027
  Serious: Yes (Other)
  Sender: FDA-Public Use
  Company Number: CA-TAKEDA-2022TUS024729

PATIENT
  Age: 17 Year
  Sex: Male
  Weight: 60 kg

DRUGS (1)
  1. MESALAMINE [Suspect]
     Active Substance: MESALAMINE
     Indication: Crohn^s disease
     Dosage: UNK
     Route: 065
     Dates: start: 201912, end: 202001

REACTIONS (2)
  - Anal abscess [Unknown]
  - Treatment failure [Recovered/Resolved]

NARRATIVE: CASE EVENT DATE: 20191201
